FAERS Safety Report 7759910-X (Version None)
Quarter: 2011Q3

REPORT INFORMATION
  Report Type: 
  Country: None (occurrence: None)
  Receive Date: 20110919
  Receipt Date: 20110909
  Transmission Date: 20111222
  Serious: Yes (Hospitalization)
  Sender: FDA-Public Use
  Company Number: JP-MERCK-1109USA01271

PATIENT
  Age: 37 Year
  Sex: Male

DRUGS (2)
  1. ISENTRESS [Suspect]
     Indication: HIV INFECTION
     Route: 048
     Dates: start: 20110815, end: 20110819
  2. TRUVADA [Concomitant]
     Indication: HIV INFECTION
     Route: 048
     Dates: start: 20110815

REACTIONS (5)
  - RASH [None]
  - MYALGIA [None]
  - PYREXIA [None]
  - LYMPHADENOPATHY [None]
  - BLOOD CREATINE PHOSPHOKINASE INCREASED [None]
